FAERS Safety Report 9776025 (Version 1)
Quarter: 2013Q4

REPORT INFORMATION
  Report Type: Spontaneous
  Country: GB (occurrence: GB)
  Receive Date: 20131220
  Receipt Date: 20131220
  Transmission Date: 20140711
  Serious: Yes (Death)
  Sender: FDA-Public Use
  Company Number: GB-BRISTOL-MYERS SQUIBB COMPANY-19899723

PATIENT
  Age: 72 Year
  Sex: Female
  Weight: 84 kg

DRUGS (6)
  1. YERVOY [Suspect]
     Indication: CHEMOTHERAPY
     Dosage: 250 MG
     Route: 042
     Dates: start: 20130807, end: 20131009
  2. METFORMIN [Suspect]
     Indication: TYPE 2 DIABETES MELLITUS
  3. PREDNISOLONE [Suspect]
  4. CLEXANE [Concomitant]
     Indication: THROMBOSIS PROPHYLAXIS
  5. SIMVASTATIN [Concomitant]
     Indication: BLOOD CHOLESTEROL INCREASED
  6. OMEPRAZOLE [Concomitant]
     Indication: PROPHYLAXIS

REACTIONS (4)
  - Circulatory collapse [Fatal]
  - Blood glucose abnormal [Fatal]
  - Malaise [Not Recovered/Not Resolved]
  - Pyrexia [Not Recovered/Not Resolved]
